FAERS Safety Report 16242637 (Version 1)
Quarter: 2019Q2

REPORT INFORMATION
  Report Type: Spontaneous
  Country: US (occurrence: US)
  Receive Date: 20190426
  Receipt Date: 20190426
  Transmission Date: 20190711
  Serious: No
  Sender: FDA-Public Use
  Company Number: US-ELI_LILLY_AND_COMPANY-US201904012385

PATIENT

DRUGS (1)
  1. TRULICITY [Suspect]
     Active Substance: DULAGLUTIDE
     Indication: PRODUCT USED FOR UNKNOWN INDICATION
     Dosage: UNK UNK, WEEKLY (1/W)
     Route: 065
     Dates: start: 201903

REACTIONS (5)
  - Diarrhoea [Unknown]
  - Injection site urticaria [Unknown]
  - Pruritus generalised [Unknown]
  - Abdominal discomfort [Unknown]
  - Injection site bruising [Unknown]
